FAERS Safety Report 23139084 (Version 2)
Quarter: 2023Q4

REPORT INFORMATION
  Report Type: Spontaneous
  Country: IE (occurrence: IE)
  Receive Date: 20231102
  Receipt Date: 20231114
  Transmission Date: 20240109
  Serious: Yes (Death, Other)
  Sender: FDA-Public Use
  Company Number: None

PATIENT
  Age: 63 Year
  Sex: Male

DRUGS (4)
  1. BOSULIF [Suspect]
     Active Substance: BOSUTINIB MONOHYDRATE
     Indication: Chronic myeloid leukaemia
     Dosage: UNK
     Dates: start: 2018
  2. BUMETANIDE [Suspect]
     Active Substance: BUMETANIDE
     Dates: start: 2022
  3. LIDOCAINE HYDROCHLORIDE [Concomitant]
     Active Substance: DEXTROSE MONOHYDRATE\EPINEPHRINE\EPINEPHRINE BITARTRATE\LIDOCAINE\LIDOCAINE HYDROCHLORIDE\LIDOCAINE
     Dosage: 0.28 UG/ML CONFIRMED, IN THE SUBTHERAPEUTIC RANGE
     Dates: start: 2023
  4. PSEUDOEPHEDRINE [Concomitant]
     Active Substance: PSEUDOEPHEDRINE
     Dosage: 0.033 UG/ML CONFIRMED, IN THE SUBTHERAPEUTIC RANGE.
     Dates: start: 2023

REACTIONS (5)
  - Cardiac arrest [Fatal]
  - Dilated cardiomyopathy [Fatal]
  - Acute kidney injury [Fatal]
  - Toxic epidermal necrolysis [Fatal]
  - Cardiac failure congestive [Fatal]

NARRATIVE: CASE EVENT DATE: 20221201
